FAERS Safety Report 23212339 (Version 1)
Quarter: 2023Q4

REPORT INFORMATION
  Report Type: Spontaneous
  Country: US (occurrence: None)
  Receive Date: 20231121
  Receipt Date: 20231121
  Transmission Date: 20240110
  Serious: Yes (Hospitalization)
  Sender: FDA-Public Use
  Company Number: None

PATIENT

DRUGS (20)
  1. FINGOLIMOD [Suspect]
     Active Substance: FINGOLIMOD
     Route: 048
  2. BACTRIM DS [Concomitant]
  3. clotrim/beta cre diprop [Concomitant]
  4. COPAXONE [Concomitant]
     Active Substance: GLATIRAMER ACETATE
  5. dalfampridin [Concomitant]
  6. A-HYDROCORT [Concomitant]
     Active Substance: HYDROCORTISONE SODIUM SUCCINATE
  7. LORAZEPAM [Concomitant]
     Active Substance: LORAZEPAM
  8. METFORMIN [Concomitant]
     Active Substance: METFORMIN HYDROCHLORIDE
  9. METHYLPREDNISOLONE [Concomitant]
     Active Substance: METHYLPREDNISOLONE
  10. MOMETASONE [Concomitant]
     Active Substance: MOMETASONE
  11. MYRBETRIQ [Concomitant]
     Active Substance: MIRABEGRON
  12. NORTRIPTYLINE [Concomitant]
     Active Substance: NORTRIPTYLINE
  13. OXCARBAZEPINE [Concomitant]
     Active Substance: OXCARBAZEPINE
  14. PANTOPRAZOLE [Concomitant]
     Active Substance: PANTOPRAZOLE
  15. PREGABALIN [Concomitant]
     Active Substance: PREGABALIN
  16. RIZATRIPTAN [Concomitant]
     Active Substance: RIZATRIPTAN
  17. SOLIFENACIN [Concomitant]
     Active Substance: SOLIFENACIN
  18. SYNTHROID [Concomitant]
     Active Substance: LEVOTHYROXINE SODIUM
  19. tobra/dexame sus [Concomitant]
  20. TRULICITY [Concomitant]

REACTIONS (17)
  - Back pain [None]
  - Depression [None]
  - Balance disorder [None]
  - Dizziness [None]
  - Fatigue [None]
  - Infection [None]
  - Paraesthesia [None]
  - Dysuria [None]
  - Multiple sclerosis [None]
  - Bladder disorder [None]
  - Cognitive disorder [None]
  - Mobility decreased [None]
  - Fall [None]
  - Musculoskeletal stiffness [None]
  - Muscle spasticity [None]
  - Pain [None]
  - Nonspecific reaction [None]
